FAERS Safety Report 9830913 (Version 1)
Quarter: 2014Q1

REPORT INFORMATION
  Report Type: Spontaneous
  Country: US (occurrence: US)
  Receive Date: 20140120
  Receipt Date: 20140120
  Transmission Date: 20141002
  Serious: Yes (Hospitalization)
  Sender: FDA-Public Use
  Company Number: US-ABBVIE-14P-163-1189412-00

PATIENT
  Age: 55 Year
  Sex: Female

DRUGS (17)
  1. HUMIRA [Suspect]
     Indication: CROHN^S DISEASE
     Dates: start: 201306
  2. HUMIRA [Suspect]
     Indication: RHEUMATOID ARTHRITIS
  3. PREDNISONE [Concomitant]
     Indication: CROHN^S DISEASE
  4. PREDNISONE [Concomitant]
     Indication: RHEUMATOID ARTHRITIS
  5. DICYCLOMINE [Concomitant]
     Indication: CROHN^S DISEASE
  6. DICYCLOMINE [Concomitant]
     Indication: RHEUMATOID ARTHRITIS
  7. DIPHENOXYLATE/ATROPINE [Concomitant]
     Indication: CROHN^S DISEASE
  8. DIPHENOXYLATE/ATROPINE [Concomitant]
     Indication: RHEUMATOID ARTHRITIS
  9. ONDANSETRON [Concomitant]
     Indication: CROHN^S DISEASE
  10. ONDANSETRON [Concomitant]
     Indication: RHEUMATOID ARTHRITIS
  11. METOPROLOL [Concomitant]
     Indication: HYPERTENSION
  12. AMLODIPINE [Concomitant]
     Indication: HYPERTENSION
  13. TRIAMTERONE [Concomitant]
     Indication: HYPERTENSION
  14. CLONAZEPAM [Concomitant]
     Indication: MUSCULAR DYSTROPHY
  15. CARBAMAZEPINE [Concomitant]
     Indication: MUSCULAR DYSTROPHY
  16. B-12 [Concomitant]
     Indication: MUSCULAR DYSTROPHY
  17. VIT D [Concomitant]
     Indication: MUSCULAR DYSTROPHY
     Dosage: MONDAY WEDNSEDAY FRIDAY

REACTIONS (5)
  - Malaise [Recovered/Resolved]
  - Clostridium difficile infection [Recovered/Resolved]
  - Clostridium difficile infection [Recovering/Resolving]
  - Abscess [Unknown]
  - Fistula [Unknown]
